FAERS Safety Report 8503088-1 (Version None)
Quarter: 2012Q3

REPORT INFORMATION
  Report Type: 
  Country: None (occurrence: None)
  Receive Date: 20120705
  Receipt Date: 20120705
  Transmission Date: 20120928
  Serious: Yes (Other)
  Sender: FDA-Public Use
  Company Number: None

PATIENT
  Age: 21 Year
  Sex: Male
  Weight: 83.9154 kg

DRUGS (1)
  1. LARIAM [Suspect]
     Indication: MALARIA PROPHYLAXIS
     Dosage: 25MG ONE TIME PER WEEK PO
     Route: 048
     Dates: start: 19910715, end: 19920110

REACTIONS (6)
  - ABNORMAL DREAMS [None]
  - PSYCHOTIC DISORDER [None]
  - DRUG INEFFECTIVE [None]
  - COLD SWEAT [None]
  - MANIA [None]
  - INSOMNIA [None]
